FAERS Safety Report 8285086-9 (Version None)
Quarter: 2012Q2

REPORT INFORMATION
  Report Type: 
  Country: None (occurrence: None)
  Receive Date: 20120413
  Receipt Date: 20110725
  Transmission Date: 20120825
  Serious: No
  Sender: FDA-Public Use
  Company Number: US-ASTRAZENECA-2010SE56427

PATIENT
  Age: 84 Year
  Sex: Female

DRUGS (4)
  1. COREG [Concomitant]
  2. DIOVAN [Concomitant]
  3. NEXIUM [Suspect]
     Route: 048
     Dates: start: 20100801
  4. PLAVIX [Concomitant]

REACTIONS (2)
  - BALANCE DISORDER [None]
  - OEDEMA PERIPHERAL [None]
